FAERS Safety Report 15592200 (Version 1)
Quarter: 2018Q4

REPORT INFORMATION
  Report Type: Spontaneous
  Country: NL (occurrence: NL)
  Receive Date: 20181107
  Receipt Date: 20181107
  Transmission Date: 20190205
  Serious: Yes (Other)
  Sender: FDA-Public Use
  Company Number: NL-MYLANLABS-2018M1083267

PATIENT
  Age: 75 Year
  Sex: Female
  Weight: 100 kg

DRUGS (6)
  1. BISOPROLOL [Concomitant]
     Active Substance: BISOPROLOL
     Indication: PRODUCT USED FOR UNKNOWN INDICATION
     Dosage: UNK
     Dates: start: 20180623
  2. PANTOPRAZOL                        /01263201/ [Concomitant]
     Active Substance: PANTOPRAZOLE
     Indication: PRODUCT USED FOR UNKNOWN INDICATION
     Dosage: 40 MG  1X PERDAG
  3. ACENOCOUMAROL [Concomitant]
     Active Substance: ACENOCOUMAROL
     Indication: PRODUCT USED FOR UNKNOWN INDICATION
     Dosage: UNK
  4. AMLODIPINE [Suspect]
     Active Substance: AMLODIPINE BESYLATE
     Indication: HYPERTENSION
     Dosage: 1X PER DAG
     Dates: start: 20180305, end: 20180423
  5. AMIODARON                          /00133101/ [Concomitant]
     Active Substance: AMIODARONE
     Indication: PRODUCT USED FOR UNKNOWN INDICATION
     Dosage: 200 MG HALF TABLET
  6. PERINDOPRIL [Concomitant]
     Active Substance: PERINDOPRIL
     Indication: PRODUCT USED FOR UNKNOWN INDICATION
     Dosage: 2 XKEER PERDAG

REACTIONS (8)
  - Syncope [Unknown]
  - Gingival swelling [Unknown]
  - Dizziness [Unknown]
  - Pruritus [Unknown]
  - Glaucoma [Unknown]
  - Nausea [Unknown]
  - Chest pain [Unknown]
  - Flushing [Unknown]

NARRATIVE: CASE EVENT DATE: 20180305
